FAERS Safety Report 8759546 (Version 1)
Quarter: 2012Q4

REPORT INFORMATION
  Report Type: 
  Country: US (occurrence: US)
  Receive Date: 20120829
  Receipt Date: 20120829
  Transmission Date: 20130627
  Serious: Yes (Life-Threatening, Hospitalization)
  Sender: FDA-Public Use
  Company Number: US-MPIJNJ-2012-06010

PATIENT
  Sex: Female
  Weight: 41.8 kg

DRUGS (7)
  1. VELCADE [Suspect]
     Indication: ACUTE MYELOID LEUKAEMIA
     Dosage: 1.3 mg/m2, Cyclic
     Route: 042
     Dates: start: 20120420, end: 20120709
  2. CYTARABINE [Suspect]
     Indication: ACUTE MYELOID LEUKAEMIA
     Dosage: 100 mg/m2, Cyclic
     Route: 042
     Dates: start: 20120420
  3. CYTARABINE [Suspect]
     Dosage: UNK UNK, Cyclic
     Route: 037
     Dates: start: 20120420, end: 20120707
  4. CYTARABINE [Suspect]
     Dosage: 1000 mg/m2, Cyclic
     Route: 042
     Dates: start: 20120702, end: 20120707
  5. DAUNORUBICIN HYDROCHLORIDE [Suspect]
     Indication: ACUTE MYELOID LEUKAEMIA
     Dosage: 50 mg/m2, Cyclic
     Route: 042
     Dates: start: 20120420, end: 20120528
  6. ETOPOSIDE [Suspect]
     Indication: ACUTE MYELOID LEUKAEMIA
     Dosage: 100 mg/m2, Cyclic
     Route: 042
     Dates: start: 20120420
  7. ETOPOSIDE [Suspect]
     Dosage: 150 mg/m2, Cyclic
     Route: 042
     Dates: start: 20120702, end: 20120706

REACTIONS (2)
  - Hypotension [Recovered/Resolved]
  - Bacteraemia [Recovered/Resolved]
